FAERS Safety Report 11398563 (Version 1)
Quarter: 2015Q3

REPORT INFORMATION
  Report Type: Spontaneous
  Country: US (occurrence: US)
  Receive Date: 20150820
  Receipt Date: 20150820
  Transmission Date: 20151125
  Serious: No
  Sender: FDA-Public Use
  Company Number: US-ASTRAZENECA-2015SE77794

PATIENT
  Sex: Female

DRUGS (1)
  1. BYDUREON [Suspect]
     Active Substance: EXENATIDE
     Dosage: 2,UNKNOWN
     Route: 065

REACTIONS (2)
  - Product quality issue [Unknown]
  - Pain [Unknown]

NARRATIVE: CASE EVENT DATE: 20150810
